FAERS Safety Report 10512094 (Version 2)
Quarter: 2014Q4

REPORT INFORMATION
  Report Type: Report from Study
  Country: JP (occurrence: JP)
  Receive Date: 20141010
  Receipt Date: 20141010
  Transmission Date: 20150528
  Serious: Yes (Hospitalization)
  Sender: FDA-Public Use
  Company Number: JP-ABBVIE-14P-087-1271350-00

PATIENT
  Age: 1 Month
  Sex: Female
  Weight: 2.7 kg

DRUGS (14)
  1. DECADRON [Suspect]
     Active Substance: DEXAMETHASONE
     Route: 065
     Dates: start: 20140204, end: 20140206
  2. ACICLOVIR [Concomitant]
     Active Substance: ACYCLOVIR
     Indication: HISTIOCYTOSIS HAEMATOPHAGIC
     Dates: start: 20131211, end: 20140108
  3. AMPHOTERICIN B. [Concomitant]
     Active Substance: AMPHOTERICIN B
     Indication: HISTIOCYTOSIS HAEMATOPHAGIC
     Route: 048
     Dates: start: 20140111, end: 20140223
  4. HUMAN SERUM ALBUMIN [Concomitant]
     Indication: HISTIOCYTOSIS HAEMATOPHAGIC
     Dates: start: 20140108, end: 20140108
  5. HUMAN SERUM ALBUMIN [Concomitant]
     Indication: HERPES VIRUS INFECTION
  6. DECADRON [Suspect]
     Active Substance: DEXAMETHASONE
     Indication: HISTIOCYTOSIS HAEMATOPHAGIC
     Route: 048
     Dates: start: 20140109, end: 20140127
  7. ACICLOVIR [Concomitant]
     Active Substance: ACYCLOVIR
     Indication: HERPES VIRUS INFECTION
     Route: 048
     Dates: start: 20140109
  8. AMPHOTERICIN B. [Concomitant]
     Active Substance: AMPHOTERICIN B
     Indication: HERPES VIRUS INFECTION
  9. ENALAPRIL MALEATE. [Concomitant]
     Active Substance: ENALAPRIL MALEATE
     Indication: HERPES VIRUS INFECTION
  10. ENALAPRIL MALEATE. [Concomitant]
     Active Substance: ENALAPRIL MALEATE
     Indication: HISTIOCYTOSIS HAEMATOPHAGIC
     Route: 048
     Dates: start: 20131221, end: 20140209
  11. DECADRON [Suspect]
     Active Substance: DEXAMETHASONE
     Indication: HERPES VIRUS INFECTION
     Route: 065
     Dates: start: 20140128, end: 20140203
  12. LIMETHASON (DEXAMETHASONE PALMITATE) [Suspect]
     Active Substance: DEXAMETHASONE PALMITATE
     Indication: HISTIOCYTOSIS HAEMATOPHAGIC
     Route: 065
     Dates: start: 20131218, end: 20131230
  13. SYNAGIS [Suspect]
     Active Substance: PALIVIZUMAB
     Indication: PRODUCT USED FOR UNKNOWN INDICATION
     Route: 030
     Dates: start: 20140128, end: 20140128
  14. LIMETHASON (DEXAMETHASONE PALMITATE) [Suspect]
     Active Substance: DEXAMETHASONE PALMITATE
     Indication: HERPES VIRUS INFECTION
     Route: 065
     Dates: start: 20131231, end: 20140108

REACTIONS (2)
  - Pneumonia [Recovering/Resolving]
  - Pneumonia aspiration [Unknown]

NARRATIVE: CASE EVENT DATE: 20140204
